FAERS Safety Report 16440971 (Version 1)
Quarter: 2019Q2

REPORT INFORMATION
  Report Type: Spontaneous
  Country: US (occurrence: US)
  Receive Date: 20190617
  Receipt Date: 20190617
  Transmission Date: 20190711
  Serious: No
  Sender: FDA-Public Use
  Company Number: PHEH2019US025039

PATIENT

DRUGS (1)
  1. COSENTYX [Suspect]
     Active Substance: SECUKINUMAB
     Indication: PSORIASIS
     Dosage: 300 MG, QW (VIA TWO 150 MILLIGRAMS SYRINGES)
     Route: 065
     Dates: start: 20190526

REACTIONS (2)
  - Inappropriate schedule of product administration [Unknown]
  - Confusional state [Unknown]
